FAERS Safety Report 9522113 (Version 1)
Quarter: 2013Q1

REPORT INFORMATION
  Report Type: Spontaneous
  Country: US (occurrence: None)
  Receive Date: 20130305
  Receipt Date: 20130305
  Transmission Date: 20140127
  Serious: Yes (Disabling)
  Sender: FDA-Public Use
  Company Number: 163-21880-12070886

PATIENT
  Age: 73 Year
  Sex: Male
  Weight: 97.07 kg

DRUGS (18)
  1. REVLIMID (LENALIDOMIDE) (CAPSULES) [Suspect]
     Indication: PLASMA CELL MYELOMA
     Dosage: 14 IN 14 D
     Route: 048
     Dates: start: 20120511
  2. IMODIUM (LOPERAMINE) (UNKNOWN) [Concomitant]
  3. FOLIC ACID (FOLIC ACID) (UNKNOWN) [Concomitant]
  4. MULTIVITAMINS (MULTIVITAMINS) (UNKNOWN) [Concomitant]
  5. WELLBUTRIN (BUPROPION HYDROCHLORIDE) (UNKNOWN) [Concomitant]
  6. TOPROL XL (METOPROLOL SUCCINATE) (UNKNOWN) [Concomitant]
  7. FLOMAX (TAMSULOSIN) (UNKNOWN) [Concomitant]
  8. ZOFRAN (ONDANSETRON HYDROCHLORIDE) (UNKNOWN) [Concomitant]
  9. MAGNESIUM (MAGNESIUM) (UNKNOWN) [Concomitant]
  10. ZYPREXA (OLANZAPINE) (UNKNOWN) [Concomitant]
  11. CLARITIN (LORATADINE) (UNKNOWN) [Concomitant]
  12. ACYCLOVIR (ACICLOVIR) (UNKNOWN) [Concomitant]
  13. GABAPENTIN (GABAPENTIN) (TABLETS) [Concomitant]
  14. MEPRON (ATOVAQUONE) (UNKNOWN) [Concomitant]
  15. COUMADIN (WARFARIN SODIUM) (UNKNOWN) [Concomitant]
  16. LOMOTIL (LOMOTIL) (UNKNOWN) [Concomitant]
  17. ZOMETA (ZOLEDRONIC ACID) (UNKNOWN) [Concomitant]
  18. DEXAMETHASONE (DEXAMETHASONE) (UNKNOWN) [Concomitant]

REACTIONS (1)
  - Neuropathy peripheral [None]
